FAERS Safety Report 13898135 (Version 1)
Quarter: 2017Q3

REPORT INFORMATION
  Report Type: Spontaneous
  Country: GB (occurrence: GB)
  Receive Date: 20170823
  Receipt Date: 20170823
  Transmission Date: 20171127
  Serious: Yes (Disabling, Congenital Anomaly)
  Sender: FDA-Public Use
  Company Number: GB-ASTRAZENECA-2017SE84339

PATIENT
  Sex: Female

DRUGS (5)
  1. QUETIAPINE. [Suspect]
     Active Substance: QUETIAPINE
     Dosage: TAKEN BY MUM THROUGHOUT PREGNANCY
     Route: 064
  2. DIHYDROCODEINE [Suspect]
     Active Substance: DIHYDROCODEINE
     Dosage: TAKEN BY MUM THROUGHOUT PREGNANCY
     Route: 064
  3. CITALOPRAM [Suspect]
     Active Substance: CITALOPRAM HYDROBROMIDE
     Dosage: TAKEN BY MUM THROUGHOUT PREGNANCY.
     Route: 064
  4. OMEPRAZOLE. [Suspect]
     Active Substance: OMEPRAZOLE
     Dosage: TAKEN BY MUM THROUGHOUT PREGNANCY
     Route: 064
  5. GABAPENTIN. [Suspect]
     Active Substance: GABAPENTIN
     Dosage: TAKEN BY MUM THROUGHOUT
     Route: 064

REACTIONS (1)
  - Congenital thrombocytopenia [Recovering/Resolving]
